FAERS Safety Report 14599707 (Version 1)
Quarter: 2018Q1

REPORT INFORMATION
  Report Type: Spontaneous
  Country: US (occurrence: US)
  Receive Date: 20180305
  Receipt Date: 20180305
  Transmission Date: 20180509
  Serious: Yes (Hospitalization)
  Sender: FDA-Public Use
  Company Number: US-TEVA-2018-US-864550

PATIENT
  Age: 42 Year
  Sex: Female

DRUGS (15)
  1. KETAMINE [Concomitant]
     Active Substance: KETAMINE
     Indication: MAINTENANCE OF ANAESTHESIA
     Dosage: MAINTAINED WITH CONTINUOUS INFUSIONS OF KETAMINE 10MICROG/KG/MIN
     Route: 050
  2. DIAZEPAM. [Concomitant]
     Active Substance: DIAZEPAM
     Indication: ANXIETY
     Dosage: 5 MG AS NEEDED
     Route: 048
  3. CONTRAVE [Interacting]
     Active Substance: BUPROPION HYDROCHLORIDE\NALTREXONE HYDROCHLORIDE
     Indication: WEIGHT CONTROL
     Dosage: EXTENDED-RELEASE
     Route: 048
  4. MIDAZOLAM [Concomitant]
     Active Substance: MIDAZOLAM HYDROCHLORIDE
     Indication: ANALGESIC THERAPY
     Dosage: 2MG INTRAOPERATIVELY
     Route: 042
  5. HYDROMORPHONE [Suspect]
     Active Substance: HYDROMORPHONE
     Indication: PAIN MANAGEMENT
     Dosage: PATIENT-CONTROLLED ANALGESIC PUMP WITH BOLUS DOSE OF 0.3 MG EVERY 8 MINUTES
     Route: 050
  6. LIPOSOMAL-BUPIVACAINE [Concomitant]
     Indication: ANAESTHESIA
     Dosage: 40ML
     Route: 065
  7. XANAX [Concomitant]
     Active Substance: ALPRAZOLAM
     Route: 065
  8. REMIFENTANIL [Interacting]
     Active Substance: REMIFENTANIL
     Indication: MAINTENANCE OF ANAESTHESIA
     Dosage: INFUSION OF 0.2 MICROG/KG/MIN
     Route: 050
  9. ACETAMINOPHEN. [Concomitant]
     Active Substance: ACETAMINOPHEN
     Indication: ANALGESIC THERAPY
     Dosage: 1000MG; RECEIVED PREOPERATIVELY
     Route: 048
  10. KETAMINE [Concomitant]
     Active Substance: KETAMINE
     Indication: ANALGESIC THERAPY
     Dosage: 500MG; RECEIVED INTRAOPERATIVELY
     Route: 042
  11. HYDROMORPHONE [Interacting]
     Active Substance: HYDROMORPHONE
     Indication: PAIN MANAGEMENT
     Dosage: 2 MG EVERY 3 HOURS
     Route: 048
  12. GABAPENTIN. [Concomitant]
     Active Substance: GABAPENTIN
     Indication: ANALGESIC THERAPY
     Dosage: 600MG; RECEIVED PREOPERATIVELY
     Route: 048
  13. PROPOFOL. [Concomitant]
     Active Substance: PROPOFOL
     Indication: MAINTENANCE OF ANAESTHESIA
     Dosage: INFUSION OF 125 MICROG/KG/MIN
     Route: 050
  14. FENTANYL. [Interacting]
     Active Substance: FENTANYL
     Indication: ANALGESIC THERAPY
     Dosage: 500MICROG INTRAOPERATIVELY
     Route: 042
  15. ACETAMINOPHEN. [Concomitant]
     Active Substance: ACETAMINOPHEN
     Indication: PAIN MANAGEMENT
     Dosage: 1000MG EVERY 6 HOURS
     Route: 042

REACTIONS (2)
  - Procedural pain [Recovering/Resolving]
  - Drug interaction [Recovering/Resolving]
